FAERS Safety Report 8140712-X (Version None)
Quarter: 2012Q1

REPORT INFORMATION
  Report Type: 
  Country: None (occurrence: None)
  Receive Date: 20120216
  Receipt Date: 20120206
  Transmission Date: 20120608
  Serious: Yes (Other)
  Sender: FDA-Public Use
  Company Number: CA-CELGENEUS-028-20785-12020622

PATIENT
  Age: 71 Year
  Sex: Female

DRUGS (6)
  1. THALOMID [Suspect]
     Dosage: 100 MILLIGRAM
     Route: 048
     Dates: start: 20110101
  2. THALOMID [Suspect]
     Dosage: 50 MILLIGRAM
     Route: 048
     Dates: start: 20110301, end: 20111201
  3. MELPHALAN HYDROCHLORIDE [Concomitant]
     Dosage: 18 MILLIGRAM
     Route: 065
  4. MELPHALAN HYDROCHLORIDE [Concomitant]
     Dosage: 2 MILLIGRAM
     Route: 065
  5. PREDNISONE TAB [Concomitant]
     Dosage: 150 MILLIGRAM
     Route: 065
  6. THALOMID [Suspect]
     Indication: MULTIPLE MYELOMA
     Dosage: 200 MILLIGRAM
     Route: 048
     Dates: start: 20101201

REACTIONS (5)
  - NEUROPATHY PERIPHERAL [None]
  - SYNCOPE [None]
  - SOMNOLENCE [None]
  - FEELING ABNORMAL [None]
  - RIB FRACTURE [None]
